FAERS Safety Report 7585682-8 (Version None)
Quarter: 2011Q2

REPORT INFORMATION
  Report Type: 
  Country: None (occurrence: None)
  Receive Date: 20110629
  Receipt Date: 20110629
  Transmission Date: 20111010
  Serious: Yes (Other)
  Sender: FDA-Public Use
  Company Number: None

PATIENT
  Age: 78 Year
  Sex: Female
  Weight: 49.4421 kg

DRUGS (2)
  1. TOPROL-XL [Suspect]
     Indication: SUPRAVENTRICULAR TACHYCARDIA
     Dosage: 1 TABLET A DAY
     Dates: start: 20101130, end: 20110405
  2. TOPROL-XL [Suspect]
     Indication: SUPRAVENTRICULAR TACHYCARDIA
     Dosage: 1 TABLET A DAY
     Dates: start: 20090601

REACTIONS (2)
  - SUPRAVENTRICULAR TACHYCARDIA [None]
  - ALOPECIA [None]
